FAERS Safety Report 6368853-8 (Version None)
Quarter: 2009Q3

REPORT INFORMATION
  Report Type: 
  Country: None (occurrence: None)
  Receive Date: 20090916
  Receipt Date: 20090908
  Transmission Date: 20100115
  Serious: Yes (Other)
  Sender: FDA-Public Use
  Company Number: ADR20252009

PATIENT
  Age: 70 Year
  Sex: Male

DRUGS (11)
  1. SIMVASTATIN [Suspect]
     Indication: HYPERCHOLESTEROLAEMIA
     Dosage: 20MG, ORAL
     Route: 048
  2. IPRATROPIUM (MFR: UNKNOWN) [Suspect]
     Indication: ASTHMA
     Dosage: 20 MCG, INHALATION
     Route: 055
  3. VENTOLIN [Concomitant]
  4. CANDESARTAN CILEXETIL [Concomitant]
  5. DIPYRIDAMOLE [Concomitant]
  6. FELODIPINE [Concomitant]
  7. ASPIRIN (ASPIRIN DISPERSIBLE) [Concomitant]
  8. BECLOMETHASONE DIPROPIONATE (BECLEMETHASONE) [Concomitant]
  9. LORATADINE [Concomitant]
  10. TIOTRONIUM [Concomitant]
  11. PARACETAMOL [Concomitant]

REACTIONS (2)
  - ASTHMA [None]
  - FEELING ABNORMAL [None]
